FAERS Safety Report 4489587-0 (Version None)
Quarter: 2004Q4

REPORT INFORMATION
  Report Type: 
  Country: None (occurrence: None)
  Receive Date: 20041101
  Receipt Date: 20040915
  Transmission Date: 20050328
  Serious: Yes (Other)
  Sender: FDA-Public Use
  Company Number: PHBS2004JP12333

PATIENT
  Sex: Male

DRUGS (2)
  1. ZADITEN [Suspect]
     Indication: DERMATITIS ATOPIC
     Dosage: 0.5 MG/DAY
     Route: 048
     Dates: start: 20030530, end: 20040517
  2. ATARAX [Concomitant]
     Dosage: 7.5 MG/DAY
     Route: 048
     Dates: start: 20040324, end: 20040610

REACTIONS (5)
  - ACTIVATED PARTIAL THROMBOPLASTIN TIME [None]
  - COAGULATION FACTOR V LEVEL DECREASED [None]
  - ECCHYMOSIS [None]
  - PROTHROMBIN TIME PROLONGED [None]
  - VARICELLA [None]
